FAERS Safety Report 7556741-0 (Version None)
Quarter: 2011Q2

REPORT INFORMATION
  Report Type: 
  Country: None (occurrence: None)
  Receive Date: 20110620
  Receipt Date: 20110616
  Transmission Date: 20111010
  Serious: Yes (Hospitalization, Other)
  Sender: FDA-Public Use
  Company Number: JP-PFIZER INC-2011132459

PATIENT
  Age: 74 Year
  Sex: Female

DRUGS (1)
  1. LIPITOR [Suspect]
     Dosage: 5 MG, DAILY
     Route: 048
     Dates: start: 20110512, end: 20110520

REACTIONS (3)
  - DYSPNOEA [None]
  - MALAISE [None]
  - BLOOD CREATINE PHOSPHOKINASE INCREASED [None]
